FAERS Safety Report 13695506 (Version 1)
Quarter: 2017Q2

REPORT INFORMATION
  Report Type: Spontaneous
  Country: US (occurrence: US)
  Receive Date: 20170627
  Receipt Date: 20170627
  Transmission Date: 20170830
  Serious: Yes (Other)
  Sender: FDA-Public Use
  Company Number: US-PFIZER INC-2017276289

PATIENT
  Sex: Female

DRUGS (1)
  1. XELJANZ [Suspect]
     Active Substance: TOFACITINIB CITRATE
     Dosage: 5 MG, UNK

REACTIONS (14)
  - Arthralgia [Unknown]
  - Joint swelling [Unknown]
  - Dry mouth [Unknown]
  - Fatigue [Unknown]
  - Eye irritation [Unknown]
  - Hypoaesthesia [Unknown]
  - Psoriasis [Unknown]
  - Weight increased [Unknown]
  - Dyspnoea [Unknown]
  - Rash [Unknown]
  - Musculoskeletal stiffness [Unknown]
  - Foot deformity [Unknown]
  - Seizure [Unknown]
  - Nodal osteoarthritis [Unknown]
